FAERS Safety Report 21624364 (Version 1)
Quarter: 2022Q4

REPORT INFORMATION
  Report Type: Spontaneous
  Country: US (occurrence: US)
  Receive Date: 20221121
  Receipt Date: 20221121
  Transmission Date: 20230113
  Serious: Yes (Life-Threatening, Other)
  Sender: FDA-Public Use
  Company Number: US-BRACCO-2022US01719

PATIENT
  Age: 66 Year
  Sex: Male

DRUGS (8)
  1. LUMASON [Suspect]
     Active Substance: SULFUR HEXAFLUORIDE
     Indication: Echocardiogram
     Dosage: 2 ML, SINGLE
     Route: 042
     Dates: start: 20220502, end: 20220502
  2. LUMASON [Suspect]
     Active Substance: SULFUR HEXAFLUORIDE
     Indication: Echocardiogram
     Dosage: 2 ML, SINGLE
     Route: 042
     Dates: start: 20220502, end: 20220502
  3. LUMASON [Suspect]
     Active Substance: SULFUR HEXAFLUORIDE
     Indication: Echocardiogram
     Dosage: 2 ML, SINGLE
     Route: 042
     Dates: start: 20220502, end: 20220502
  4. ELIQUIS [Concomitant]
     Active Substance: APIXABAN
  5. ASPIRIN [Concomitant]
     Active Substance: ASPIRIN
  6. SYNTHROID [Concomitant]
     Active Substance: LEVOTHYROXINE SODIUM
  7. PRAVASTATIN [Concomitant]
     Active Substance: PRAVASTATIN
  8. NITROGLYCERIN [Concomitant]
     Active Substance: NITROGLYCERIN
     Route: 060

REACTIONS (1)
  - Anaphylactic shock [Recovering/Resolving]

NARRATIVE: CASE EVENT DATE: 20220502
